FAERS Safety Report 25675368 (Version 1)
Quarter: 2025Q3

REPORT INFORMATION
  Report Type: Spontaneous
  Country: US (occurrence: US)
  Receive Date: 20250813
  Receipt Date: 20250813
  Transmission Date: 20251021
  Serious: Yes (Other)
  Sender: MYLAN
  Company Number: US-MYLANLABS-2025M1067489

PATIENT
  Age: 13 Month
  Sex: Female

DRUGS (16)
  1. TIMOLOL [Suspect]
     Active Substance: TIMOLOL
     Indication: Infantile haemangioma
  2. TIMOLOL [Suspect]
     Active Substance: TIMOLOL
     Route: 061
  3. TIMOLOL [Suspect]
     Active Substance: TIMOLOL
     Route: 061
  4. TIMOLOL [Suspect]
     Active Substance: TIMOLOL
  5. METRONIDAZOLE [Suspect]
     Active Substance: METRONIDAZOLE
     Indication: Infantile haemangioma
  6. METRONIDAZOLE [Suspect]
     Active Substance: METRONIDAZOLE
     Route: 061
  7. METRONIDAZOLE [Suspect]
     Active Substance: METRONIDAZOLE
     Route: 061
  8. METRONIDAZOLE [Suspect]
     Active Substance: METRONIDAZOLE
  9. MUPIROCIN [Suspect]
     Active Substance: MUPIROCIN
     Indication: Infantile haemangioma
  10. MUPIROCIN [Suspect]
     Active Substance: MUPIROCIN
     Route: 061
  11. MUPIROCIN [Suspect]
     Active Substance: MUPIROCIN
     Route: 061
  12. MUPIROCIN [Suspect]
     Active Substance: MUPIROCIN
  13. GENTAMICIN [Suspect]
     Active Substance: GENTAMICIN
     Indication: Infantile haemangioma
  14. GENTAMICIN [Suspect]
     Active Substance: GENTAMICIN
     Route: 061
  15. GENTAMICIN [Suspect]
     Active Substance: GENTAMICIN
     Route: 061
  16. GENTAMICIN [Suspect]
     Active Substance: GENTAMICIN

REACTIONS (2)
  - Drug ineffective [Unknown]
  - Off label use [Unknown]
